FAERS Safety Report 7858093-5 (Version None)
Quarter: 2011Q4

REPORT INFORMATION
  Report Type: 
  Country: None (occurrence: None)
  Receive Date: 20111027
  Receipt Date: 20111017
  Transmission Date: 20120403
  Serious: Yes (Other)
  Sender: FDA-Public Use
  Company Number: US-BAYER-2011-042290

PATIENT
  Age: 25 Year
  Sex: Female
  Weight: 68.027 kg

DRUGS (4)
  1. YASMIN [Suspect]
     Indication: CONTRACEPTION
     Dosage: 1 DF, QD
     Dates: start: 20071101, end: 20100101
  2. IBUPROFEN (ADVIL) [Concomitant]
  3. DROSPIRENONE AND ETHINYL ESTRADIOL [Suspect]
     Indication: CONTRACEPTION
  4. NAPROSYN [Concomitant]

REACTIONS (9)
  - EMOTIONAL DISTRESS [None]
  - PANCREATITIS [None]
  - FEAR OF DEATH [None]
  - GALLBLADDER DISORDER [None]
  - CHOLECYSTITIS CHRONIC [None]
  - DEPRESSION [None]
  - NERVOUSNESS [None]
  - CHOLELITHIASIS [None]
  - INJURY [None]
